FAERS Safety Report 12783073 (Version 1)
Quarter: 2016Q3

REPORT INFORMATION
  Report Type: Spontaneous
  Country: US (occurrence: US)
  Receive Date: 20160926
  Receipt Date: 20160926
  Transmission Date: 20161109
  Serious: No
  Sender: FDA-Public Use
  Company Number: None

PATIENT
  Age: 30 Year
  Sex: Female
  Weight: 56.25 kg

DRUGS (8)
  1. OPTIVITE [Concomitant]
  2. HYOSCYAMINE SULFATE 0.125MG [Suspect]
     Active Substance: HYOSCYAMINE SULFATE
     Indication: BLADDER SPASM
     Route: 048
     Dates: start: 20160324, end: 20160513
  3. METHYL-FOLATE [Concomitant]
  4. SUSTAINED RELEASE VITAMIN C [Concomitant]
  5. METHYL-COBALAMIN [Concomitant]
  6. N-ACETYLCYSTEINE [Concomitant]
     Active Substance: ACETYLCYSTEINE
  7. PROGESTERONE. [Concomitant]
     Active Substance: PROGESTERONE
  8. ESTRADIOL. [Concomitant]
     Active Substance: ESTRADIOL

REACTIONS (5)
  - Impaired driving ability [None]
  - Asthenia [None]
  - Vision blurred [None]
  - Dizziness [None]
  - Dry mouth [None]

NARRATIVE: CASE EVENT DATE: 20160324
